FAERS Safety Report 6995874-4 (Version None)
Quarter: 2010Q3

REPORT INFORMATION
  Report Type: 
  Country: None (occurrence: None)
  Receive Date: 20100918
  Receipt Date: 20081113
  Transmission Date: 20110219
  Serious: No
  Sender: FDA-Public Use
  Company Number: US-WYE-H06839508

PATIENT
  Sex: Female

DRUGS (4)
  1. EFFEXOR XR [Suspect]
     Indication: DEPRESSION
     Route: 048
  2. EFFEXOR XR [Interacting]
     Indication: ANXIETY
  3. DESIPRAMINE HCL [Interacting]
     Dates: end: 20081110
  4. DESIPRAMINE HCL [Interacting]
     Dates: start: 20081111

REACTIONS (3)
  - DRUG INTERACTION [None]
  - DRY MOUTH [None]
  - SOMNOLENCE [None]
